FAERS Safety Report 17655606 (Version 1)
Quarter: 2020Q2

REPORT INFORMATION
  Report Type: Report from Study
  Country: US (occurrence: US)
  Receive Date: 20200410
  Receipt Date: 20200410
  Transmission Date: 20200713
  Serious: No
  Sender: FDA-Public Use
  Company Number: US-SUNOVION-2020SUN001063

PATIENT
  Age: 77 Year

DRUGS (23)
  1. FUROSEMIDE. [Concomitant]
     Active Substance: FUROSEMIDE
     Dosage: 40 MG, QD
     Route: 048
  2. ASPIRIN. [Concomitant]
     Active Substance: ASPIRIN
     Indication: ANGINA PECTORIS
     Dosage: 81 MG, QD
     Route: 048
  3. SYMBICORT [Concomitant]
     Active Substance: BUDESONIDE\FORMOTEROL FUMARATE DIHYDRATE
     Dosage: 160 MCG-4.5MCG/ACT, BID
     Route: 055
  4. NITROGLYCERIN. [Concomitant]
     Active Substance: NITROGLYCERIN
     Indication: ANGINA PECTORIS
     Dosage: 0.4 MG UNK
     Route: 060
  5. YUPELRI [Concomitant]
     Active Substance: REVEFENACIN
     Dosage: 175 ?G/3ML UNK
     Route: 055
  6. TESTOSTERONE PROPIONATE. [Concomitant]
     Active Substance: TESTOSTERONE PROPIONATE
     Dosage: 100 MG/ML
     Route: 030
  7. ZOLPIDEM TARTRATE. [Concomitant]
     Active Substance: ZOLPIDEM TARTRATE
     Dosage: 10 MG, QHS
     Route: 048
     Dates: start: 20151207
  8. LONHALA MAGNAIR [Suspect]
     Active Substance: GLYCOPYRROLATE
     Dosage: UNK
     Route: 055
  9. ALBUTEROL SULFATE. [Concomitant]
     Active Substance: ALBUTEROL SULFATE
     Dosage: 1.25 MG/3ML,EVERY 4 HOURS AS NECESSARY
     Route: 055
     Dates: start: 20181127
  10. ATORVASTATIN CALCIUM. [Concomitant]
     Active Substance: ATORVASTATIN CALCIUM
     Dosage: 40 MG, QD
     Route: 048
  11. XOPENEX HFA [Concomitant]
     Active Substance: LEVALBUTEROL TARTRATE
     Indication: CHRONIC OBSTRUCTIVE PULMONARY DISEASE
     Dosage: 45 ?G/INH, QID
     Route: 055
  12. RANEXA [Concomitant]
     Active Substance: RANOLAZINE
     Dosage: 1000 MG, BID
     Route: 048
  13. ELIQUIS [Concomitant]
     Active Substance: APIXABAN
     Dosage: 5 MG, BID
     Route: 048
  14. PLAVIX [Concomitant]
     Active Substance: CLOPIDOGREL BISULFATE
     Dosage: 75 MG, QD
     Route: 048
  15. DILTIAZEM HCL [Concomitant]
     Active Substance: DILTIAZEM HYDROCHLORIDE
     Dosage: 180 MG, QD
     Route: 048
  16. TRICOR [Concomitant]
     Active Substance: FENOFIBRATE
     Dosage: 67 MG, QD
     Route: 048
  17. TUDORZA PRESSAIR [Concomitant]
     Active Substance: ACLIDINIUM BROMIDE
     Dosage: 400 ?G/ACT BID
     Route: 055
  18. AMIODARONE HCL [Concomitant]
     Active Substance: AMIODARONE HYDROCHLORIDE
     Dosage: 200 MG, QD
     Route: 048
  19. SYMBICORT [Concomitant]
     Active Substance: BUDESONIDE\FORMOTEROL FUMARATE DIHYDRATE
     Indication: CHRONIC OBSTRUCTIVE PULMONARY DISEASE
     Dosage: 160 MCG-4.5MCG/INH, BID
     Route: 055
  20. DILTIAZEM HCL [Concomitant]
     Active Substance: DILTIAZEM HYDROCHLORIDE
     Dosage: 120 UNK
     Route: 048
  21. DYMISTA [Concomitant]
     Active Substance: AZELASTINE HYDROCHLORIDE\FLUTICASONE PROPIONATE
     Dosage: 137-50 MCG/AT, BID
     Route: 045
     Dates: start: 20170907
  22. METOPROLOL TARTRATE. [Concomitant]
     Active Substance: METOPROLOL TARTRATE
     Dosage: 25 MG, BID
     Route: 048
  23. ALTACE [Concomitant]
     Active Substance: RAMIPRIL
     Dosage: 5 MG, BID
     Route: 048

REACTIONS (3)
  - Heart rate increased [Unknown]
  - Dyspnoea [Unknown]
  - Blood pressure increased [Unknown]

NARRATIVE: CASE EVENT DATE: 20200326
